FAERS Safety Report 13338849 (Version 1)
Quarter: 2017Q1

REPORT INFORMATION
  Report Type: Spontaneous
  Country: JP (occurrence: JP)
  Receive Date: 20170315
  Receipt Date: 20170315
  Transmission Date: 20170428
  Serious: Yes (Death)
  Sender: FDA-Public Use
  Company Number: JP-MYLANLABS-2017M1015799

PATIENT
  Age: 81 Year
  Sex: Female

DRUGS (4)
  1. AMPHOTERICIN B. [Suspect]
     Active Substance: AMPHOTERICIN B
     Indication: MENINGITIS CRYPTOCOCCAL
     Route: 065
  2. FLUCYTOSINE. [Suspect]
     Active Substance: FLUCYTOSINE
     Indication: MENINGITIS CRYPTOCOCCAL
     Route: 065
  3. PREDNISOLONE. [Suspect]
     Active Substance: PREDNISOLONE
     Indication: MYELODYSPLASTIC SYNDROME
     Dosage: 5 MG, QD
     Route: 048
  4. GANCICLOVIR. [Suspect]
     Active Substance: GANCICLOVIR
     Indication: CYTOMEGALOVIRUS INFECTION
     Route: 065

REACTIONS (3)
  - Platelet count decreased [Fatal]
  - Cytomegalovirus infection [Fatal]
  - Meningitis cryptococcal [Fatal]
